FAERS Safety Report 9365070 (Version 1)
Quarter: 2013Q2

REPORT INFORMATION
  Report Type: Spontaneous
  Country: US (occurrence: US)
  Receive Date: 20130624
  Receipt Date: 20130624
  Transmission Date: 20140414
  Serious: Yes (Other)
  Sender: FDA-Public Use
  Company Number: US-PFIZER INC-2013187422

PATIENT
  Sex: Male
  Weight: 111 kg

DRUGS (1)
  1. LIPITOR [Suspect]
     Indication: BLOOD CHOLESTEROL ABNORMAL
     Dosage: 80 MG, 1X/DAY
     Dates: start: 1987

REACTIONS (4)
  - Arterial occlusive disease [Unknown]
  - Myocardial infarction [Unknown]
  - Diabetes mellitus [Unknown]
  - Hypertension [Unknown]
